FAERS Safety Report 5401901-8 (Version None)
Quarter: 2007Q3

REPORT INFORMATION
  Report Type: 
  Country: None (occurrence: None)
  Receive Date: 20070731
  Receipt Date: 20070719
  Transmission Date: 20080115
  Serious: Yes (Other)
  Sender: FDA-Public Use
  Company Number: AT-GENENTECH-245298

PATIENT
  Age: 29 Year
  Sex: Male

DRUGS (1)
  1. AVASTIN [Suspect]
     Indication: DRUG USE FOR UNKNOWN INDICATION
     Dosage: 0.1 ML, UNK
     Route: 031
     Dates: start: 20070604

REACTIONS (4)
  - ANTERIOR CHAMBER INFLAMMATION [None]
  - ENDOPHTHALMITIS [None]
  - EYE IRRITATION [None]
  - VITRITIS [None]
